FAERS Safety Report 4328299-0 (Version None)
Quarter: 2004Q1

REPORT INFORMATION
  Report Type: 
  Country: None (occurrence: None)
  Receive Date: 20040325
  Receipt Date: 20040227
  Transmission Date: 20041129
  Serious: No
  Sender: FDA-Public Use
  Company Number: USA-2004-0013434

PATIENT
  Age: 51 Year
  Sex: Female

DRUGS (2)
  1. SPECTRACEF [Suspect]
     Indication: SINUSITIS
     Dosage: SINGLE
  2. CLONIDINE [Concomitant]

REACTIONS (2)
  - OFF LABEL USE [None]
  - URTICARIA [None]
